FAERS Safety Report 24202070 (Version 13)
Quarter: 2024Q4

REPORT INFORMATION
  Report Type: Spontaneous
  Country: JP (occurrence: JP)
  Receive Date: 20240812
  Receipt Date: 20241125
  Transmission Date: 20250115
  Serious: Yes (Life-Threatening, Hospitalization, Other)
  Sender: MERCK
  Company Number: JP-MSD-2408JPN001108J

PATIENT
  Age: 57 Year
  Sex: Male
  Weight: 54.4 kg

DRUGS (18)
  1. KEYTRUDA [Suspect]
     Active Substance: PEMBROLIZUMAB
     Indication: Lung adenocarcinoma stage IV
     Dosage: 200 MILLIGRAM,CYCLICAL
     Route: 041
     Dates: start: 20240722, end: 20240722
  2. PEMETREXED DISODIUM [Suspect]
     Active Substance: PEMETREXED DISODIUM
     Indication: Lung adenocarcinoma stage IV
     Dosage: 785 MILLIGRAM,CYCLICAL
     Route: 042
     Dates: start: 20240722, end: 20240722
  3. CARBOPLATIN [Suspect]
     Active Substance: CARBOPLATIN
     Indication: Lung adenocarcinoma stage IV
     Dosage: 560 MILLIGRAM,CYCLICAL
     Route: 042
     Dates: start: 20240722, end: 20240722
  4. OXYCODONE HYDROCHLORIDE [Concomitant]
     Active Substance: OXYCODONE HYDROCHLORIDE
     Indication: Chest pain
     Dosage: UNK
     Route: 065
     Dates: start: 20240628, end: 20240902
  5. OXYCODONE HYDROCHLORIDE [Concomitant]
     Active Substance: OXYCODONE HYDROCHLORIDE
     Indication: Chest pain
     Dosage: UNK
     Route: 065
     Dates: start: 20240627, end: 20240820
  6. KETOPROFEN [Concomitant]
     Active Substance: KETOPROFEN
     Indication: Chest pain
     Dosage: UNK
     Route: 065
     Dates: start: 2024
  7. METOCLOPRAMIDE [Concomitant]
     Active Substance: METOCLOPRAMIDE
     Indication: Prophylaxis
     Dosage: UNK
     Route: 065
     Dates: start: 20240720, end: 20240801
  8. FEBUXOSTAT [Concomitant]
     Active Substance: FEBUXOSTAT
     Indication: Hyperuricaemia
     Dosage: UNK
     Route: 065
     Dates: start: 2024, end: 20240814
  9. DOTINURAD [Concomitant]
     Active Substance: DOTINURAD
     Indication: Hyperuricaemia
     Dosage: UNK
     Route: 065
     Dates: start: 2024, end: 20240814
  10. VITAMINS [Concomitant]
     Active Substance: VITAMINS
     Indication: Prophylaxis
     Dosage: UNK
     Route: 065
     Dates: start: 20240605, end: 20240906
  11. LEVETIRACETAM [Concomitant]
     Active Substance: LEVETIRACETAM
     Indication: Prophylaxis
     Dosage: UNK
     Route: 065
     Dates: start: 20240613
  12. CALONAL [Concomitant]
     Active Substance: ACETAMINOPHEN
     Indication: Chest pain
     Dosage: UNK
     Route: 065
     Dates: start: 20240621, end: 20240906
  13. TELMISARTAN [Concomitant]
     Active Substance: TELMISARTAN
     Indication: Hypertension
     Dosage: UNK
     Route: 065
     Dates: start: 2024, end: 20240814
  14. MAGNESIUM OXIDE [Concomitant]
     Active Substance: MAGNESIUM OXIDE
     Indication: Prophylaxis
     Dosage: UNK
     Route: 065
     Dates: start: 20240628, end: 20240802
  15. DECADRON S [Concomitant]
     Indication: Prophylaxis
     Dosage: UNK
     Route: 065
     Dates: start: 20240722, end: 20240724
  16. LANSOPRAZOLE [Concomitant]
     Active Substance: LANSOPRAZOLE
     Indication: Prophylaxis
     Dosage: UNK
     Route: 065
     Dates: start: 2024, end: 20240729
  17. SHAKUYAKUKANZOTO [Concomitant]
     Active Substance: HERBALS
     Indication: Prophylaxis
     Dosage: UNK
     Route: 065
     Dates: start: 20240723, end: 20240725
  18. OLANZAPINE [Concomitant]
     Active Substance: OLANZAPINE
     Indication: Nausea
     Dosage: UNK
     Route: 065
     Dates: start: 20240730, end: 20240801

REACTIONS (4)
  - Small intestinal perforation [Recovering/Resolving]
  - Pneumothorax [Recovering/Resolving]
  - Staphylococcal infection [Recovering/Resolving]
  - Abdominal pain [Recovered/Resolved]

NARRATIVE: CASE EVENT DATE: 20240801
